FAERS Safety Report 6904147-7 (Version None)
Quarter: 2010Q3

REPORT INFORMATION
  Report Type: 
  Country: None (occurrence: None)
  Receive Date: 20100804
  Receipt Date: 20090324
  Transmission Date: 20110219
  Serious: No
  Sender: FDA-Public Use
  Company Number: US-PFIZER INC-2009158741

PATIENT
  Sex: Female
  Weight: 89.8 kg

DRUGS (5)
  1. LYRICA [Suspect]
     Indication: NERVOUS SYSTEM DISORDER
     Dosage: 75 MG, 1X/DAY
     Route: 048
     Dates: start: 20090101
  2. DRUG, UNSPECIFIED [Concomitant]
  3. VICODIN [Concomitant]
  4. ANTIHYPERTENSIVES [Concomitant]
     Dosage: UNK
  5. ANTIINFECTIVES [Concomitant]

REACTIONS (6)
  - CONFUSIONAL STATE [None]
  - CRYING [None]
  - PAIN [None]
  - PAIN OF SKIN [None]
  - SEDATION [None]
  - SOMNOLENCE [None]
